FAERS Safety Report 6193682-8 (Version None)
Quarter: 2009Q2

REPORT INFORMATION
  Report Type: 
  Country: None (occurrence: None)
  Receive Date: 20090518
  Receipt Date: 20090516
  Transmission Date: 20091009
  Serious: Yes (Other)
  Sender: FDA-Public Use
  Company Number: US-PFIZER INC-2009172707

PATIENT
  Sex: Female
  Weight: 72.574 kg

DRUGS (12)
  1. GEODON [Suspect]
  2. LITHIUM CARBONATE [Concomitant]
     Dosage: UNK
  3. SYNTHROID [Concomitant]
     Dosage: UNK
  4. LIBRAX [Concomitant]
     Dosage: UNK
  5. VALIUM [Concomitant]
  6. DARVOCET [Concomitant]
     Dosage: UNK
  7. PROMETHAZINE [Concomitant]
     Dosage: UNK
  8. FERROUS SULFATE TAB [Concomitant]
     Dosage: UNK
  9. NEURONTIN [Concomitant]
     Dosage: UNK
  10. OXYGEN [Concomitant]
     Dosage: UNK
  11. OTHER RESPIRATORY SYSTEM PRODUCTS [Concomitant]
     Dosage: UNK
  12. CORTICOSTEROIDS [Concomitant]
     Dosage: UNK

REACTIONS (1)
  - BLINDNESS [None]
